FAERS Safety Report 8030370-7 (Version None)
Quarter: 2012Q1

REPORT INFORMATION
  Report Type: 
  Country: None (occurrence: None)
  Receive Date: 20120109
  Receipt Date: 20120109
  Transmission Date: 20120608
  Serious: Yes (Other)
  Sender: FDA-Public Use
  Company Number: None

PATIENT
  Age: 36 Year
  Sex: Male
  Weight: 81.646 kg

DRUGS (2)
  1. CELEBREX [Suspect]
     Indication: PAIN
     Dosage: 200MG
     Route: 048
     Dates: start: 20081030, end: 20081107
  2. CELEBREX [Suspect]
     Indication: ARTHRITIS
     Dosage: 200MG
     Route: 048
     Dates: start: 20081030, end: 20081107

REACTIONS (2)
  - DIZZINESS [None]
  - HEART RATE IRREGULAR [None]
